FAERS Safety Report 16453191 (Version 3)
Quarter: 2021Q3

REPORT INFORMATION
  Report Type: Report from Study
  Country: US (occurrence: US)
  Receive Date: 20190619
  Receipt Date: 20210705
  Transmission Date: 20211014
  Serious: Yes (Disabling)
  Sender: FDA-Public Use
  Company Number: US-SA-2019SA161821

PATIENT
  Age: 53 Year
  Sex: Male

DRUGS (3)
  1. TERIFLUNOMIDE. [Suspect]
     Active Substance: TERIFLUNOMIDE
     Dosage: 14 MG, QD
     Route: 048
  2. TERIFLUNOMIDE. [Suspect]
     Active Substance: TERIFLUNOMIDE
     Dosage: 7 MG, QD
     Route: 048
     Dates: start: 20191104
  3. TERIFLUNOMIDE. [Suspect]
     Active Substance: TERIFLUNOMIDE
     Indication: MULTIPLE SCLEROSIS
     Dosage: 14 MG, BID
     Route: 048
     Dates: start: 20190514, end: 20190916

REACTIONS (9)
  - Product use issue [Unknown]
  - Thyroid hormones increased [Not Recovered/Not Resolved]
  - Dysstasia [Not Recovered/Not Resolved]
  - Diarrhoea [Recovered/Resolved]
  - Wrong technique in product usage process [Unknown]
  - Musculoskeletal stiffness [Not Recovered/Not Resolved]
  - Motor dysfunction [Not Recovered/Not Resolved]
  - Loss of personal independence in daily activities [Not Recovered/Not Resolved]
  - Inappropriate schedule of product administration [Unknown]

NARRATIVE: CASE EVENT DATE: 201905
